FAERS Safety Report 4319839-6 (Version None)
Quarter: 2004Q1

REPORT INFORMATION
  Report Type: 
  Country: None (occurrence: None)
  Receive Date: 20040319
  Receipt Date: 20040309
  Transmission Date: 20041129
  Serious: Yes (Other)
  Sender: FDA-Public Use
  Company Number: PHEH2004US02888

PATIENT
  Sex: Female

DRUGS (1)
  1. GLEEVEC [Suspect]
     Indication: GASTROINTESTINAL STROMAL TUMOUR
     Dosage: 600 MG, QD
     Route: 048

REACTIONS (5)
  - DECREASED APPETITE [None]
  - MALABSORPTION [None]
  - NEOPLASM PROGRESSION [None]
  - SHORT-BOWEL SYNDROME [None]
  - WEIGHT DECREASED [None]
